FAERS Safety Report 5302665-9 (Version None)
Quarter: 2007Q2

REPORT INFORMATION
  Report Type: 
  Country: None (occurrence: None)
  Receive Date: 20070419
  Receipt Date: 20070409
  Transmission Date: 20071010
  Serious: Yes (Other)
  Sender: FDA-Public Use
  Company Number: US-AMGEN-STX218674

PATIENT
  Sex: Female

DRUGS (4)
  1. ENBREL [Suspect]
     Indication: RHEUMATOID ARTHRITIS
     Route: 058
     Dates: start: 19990601
  2. METHOTREXATE [Concomitant]
     Route: 048
     Dates: start: 19950601
  3. HUMIRA [Concomitant]
  4. ARAVA [Concomitant]

REACTIONS (3)
  - NERVE INJURY [None]
  - SURGERY [None]
  - TEMPOROMANDIBULAR JOINT SYNDROME [None]
